FAERS Safety Report 6163432-X (Version None)
Quarter: 2009Q2

REPORT INFORMATION
  Report Type: 
  Country: None (occurrence: None)
  Receive Date: 20090422
  Receipt Date: 20090417
  Transmission Date: 20091009
  Serious: Yes (Death, Hospitalization)
  Sender: FDA-Public Use
  Company Number: ZA-AVENTIS-200913686GDDC

PATIENT
  Age: 68 Year
  Sex: Female
  Weight: 43.2 kg

DRUGS (10)
  1. RIFAMPICIN [Suspect]
     Indication: TUBERCULOSIS
     Dates: start: 20090311, end: 20090324
  2. CODE UNBROKEN [Suspect]
     Indication: TUBERCULOSIS
     Dates: start: 20090311, end: 20090324
  3. PYRAZINAMIDE [Suspect]
     Indication: TUBERCULOSIS
     Dates: start: 20090311, end: 20090324
  4. CODE UNBROKEN [Suspect]
     Dates: start: 20090311, end: 20090324
  5. CODE UNBROKEN [Suspect]
     Dates: start: 20090311, end: 20090324
  6. BETARETIC [Suspect]
     Indication: HYPERTENSION
     Dosage: DOSE: 1 TBL
     Route: 048
     Dates: start: 20060101
  7. PAINAMOL [Concomitant]
     Route: 048
     Dates: start: 20090309
  8. RESERPINE [Concomitant]
     Route: 048
     Dates: start: 20060101
  9. AMOXIL [Concomitant]
     Route: 048
     Dates: start: 20090317, end: 20090322
  10. STILPANE                           /01152401/ [Concomitant]
     Dosage: DOSE: 3 TBL
     Route: 048
     Dates: start: 20090317, end: 20090324

REACTIONS (2)
  - CONFUSIONAL STATE [None]
  - HYPONATRAEMIA [None]
